FAERS Safety Report 8773162 (Version 1)
Quarter: 2012Q4

REPORT INFORMATION
  Report Type: Report from Study
  Country: US (occurrence: US)
  Receive Date: 20120907
  Receipt Date: 20120907
  Transmission Date: 20130627
  Serious: Yes (Death, Hospitalization)
  Sender: FDA-Public Use
  Company Number: US-ROCHE-1108830

PATIENT
  Age: 45 Year
  Sex: Female
  Weight: 68.6 kg

DRUGS (2)
  1. AVASTIN [Suspect]
     Indication: BREAST CANCER
     Dosage: Date of last administration:14/Mar/2012
     Route: 042
     Dates: start: 20110811
  2. PACLITAXEL [Suspect]
     Indication: BREAST CANCER
     Dosage: Date of last administration:14/Mar/2012
     Route: 042
     Dates: start: 20110811

REACTIONS (2)
  - Hepatic failure [Fatal]
  - Sepsis [Fatal]
